FAERS Safety Report 5490329-0 (Version None)
Quarter: 2007Q4

REPORT INFORMATION
  Report Type: 
  Country: None (occurrence: None)
  Receive Date: 20071017
  Receipt Date: 20071005
  Transmission Date: 20080405
  Serious: Yes (Death)
  Sender: FDA-Public Use
  Company Number: 2007BI021414

PATIENT
  Age: 32 Year
  Sex: Male

DRUGS (2)
  1. NATALIZUMAB [Suspect]
     Indication: MULTIPLE SCLEROSIS
     Dosage: 300 MG; QM; IV
     Route: 042
     Dates: start: 20070212, end: 20070827
  2. AVONEX [Concomitant]

REACTIONS (3)
  - MOBILITY DECREASED [None]
  - WALKING AID USER [None]
  - WHEELCHAIR USER [None]
